FAERS Safety Report 5722993-2 (Version None)
Quarter: 2008Q2

REPORT INFORMATION
  Report Type: 
  Country: None (occurrence: None)
  Receive Date: 20080430
  Receipt Date: 20071026
  Transmission Date: 20081010
  Serious: No
  Sender: FDA-Public Use
  Company Number: US-BAYER-US-2007-040996

PATIENT
  Age: 27 Year
  Sex: Female
  Weight: 57 kg

DRUGS (1)
  1. MIRENA [Suspect]
     Indication: CONTRACEPTION
     Route: 015
     Dates: start: 20071012

REACTIONS (1)
  - ALOPECIA [None]
